FAERS Safety Report 8977886 (Version 1)
Quarter: 2012Q4

REPORT INFORMATION
  Report Type: 
  Country: IE (occurrence: IE)
  Receive Date: 20121219
  Receipt Date: 20121219
  Transmission Date: 20130627
  Serious: Yes (Other)
  Sender: FDA-Public Use
  Company Number: IE-ASTRAZENECA-2012SE93257

PATIENT
  Age: 37 Year
  Sex: Male
  Weight: 70 kg

DRUGS (2)
  1. SEROQUEL [Suspect]
     Indication: ANXIETY
     Route: 048
     Dates: start: 20121124, end: 20121127
  2. SEROQUEL [Suspect]
     Indication: INTENTIONAL SELF-INJURY
     Route: 048
     Dates: start: 20121124, end: 20121127

REACTIONS (4)
  - Paraesthesia [Unknown]
  - Genital paraesthesia [Unknown]
  - Abdominal distension [Unknown]
  - Poor quality sleep [Unknown]
